FAERS Safety Report 9344105 (Version 3)
Quarter: 2014Q1

REPORT INFORMATION
  Report Type: Report from Study
  Country: FR (occurrence: FR)
  Receive Date: 20130612
  Receipt Date: 20140120
  Transmission Date: 20141002
  Serious: Yes (Hospitalization)
  Sender: FDA-Public Use
  Company Number: PHHY2013FR043655

PATIENT
  Age: 64 Year
  Sex: Female
  Weight: 62 kg

DRUGS (6)
  1. AMN107 [Suspect]
     Indication: CHRONIC MYELOID LEUKAEMIA
     Dosage: 400 MG, BID
     Route: 048
     Dates: start: 20110302, end: 20130311
  2. TANAKAN [Concomitant]
  3. DOLIPRANE [Concomitant]
     Indication: FIBROMYALGIA
     Dosage: 500 MG, BID
  4. MELPHALAN [Concomitant]
     Dates: start: 20130318
  5. PREDNISONE [Concomitant]
     Dates: start: 20130318
  6. VELCADE [Concomitant]
     Dates: start: 20130318

REACTIONS (3)
  - Light chain disease [Not Recovered/Not Resolved]
  - Second primary malignancy [Not Recovered/Not Resolved]
  - Rib fracture [Unknown]
